FAERS Safety Report 17573701 (Version 1)
Quarter: 2020Q1

REPORT INFORMATION
  Report Type: Spontaneous
  Country: US (occurrence: US)
  Receive Date: 20200323
  Receipt Date: 20200323
  Transmission Date: 20200409
  Serious: Yes (Other)
  Sender: FDA-Public Use
  Company Number: US-PFIZER INC-2020066879

PATIENT
  Age: 58 Year
  Sex: Female

DRUGS (4)
  1. RIZATRIPTAN. [Suspect]
     Active Substance: RIZATRIPTAN
     Dosage: 10 MG, UNK
  2. RELPAX [Suspect]
     Active Substance: ELETRIPTAN HYDROBROMIDE
     Indication: HEADACHE
     Dosage: 40 MG, [1 TAB AT ONSET OF HEADACHE AND REPEAT IN 2 HRS NO MORE THAN 2 TAB IN 24 HOURS]
     Route: 048
  3. BOTOX [Suspect]
     Active Substance: ONABOTULINUMTOXINA
     Dosage: UNK, MONTHLY (ONCE A MONTH)
  4. EMGALITY [Suspect]
     Active Substance: GALCANEZUMAB-GNLM
     Dosage: UNK, MONTHLY (ONCE A MONTH)

REACTIONS (9)
  - Stress [Unknown]
  - Musculoskeletal discomfort [Unknown]
  - Breast cancer [Unknown]
  - Thinking abnormal [Unknown]
  - Malaise [Unknown]
  - Off label use [Unknown]
  - Product use in unapproved indication [Unknown]
  - Drug effective for unapproved indication [Unknown]
  - Migraine [Unknown]
